FAERS Safety Report 9473153 (Version 1)
Quarter: 2013Q3

REPORT INFORMATION
  Report Type: Spontaneous
  Country: US (occurrence: US)
  Receive Date: 20130823
  Receipt Date: 20130823
  Transmission Date: 20140515
  Serious: No
  Sender: FDA-Public Use
  Company Number: US-BRISTOL-MYERS SQUIBB COMPANY-18700401

PATIENT
  Age: 80 Year
  Sex: Male
  Weight: 83.9 kg

DRUGS (1)
  1. SPRYCEL [Suspect]
     Indication: PROSTATE CANCER

REACTIONS (2)
  - Circumstance or information capable of leading to medication error [Unknown]
  - Adverse reaction [Unknown]
